FAERS Safety Report 8079902-3 (Version None)
Quarter: 2012Q1

REPORT INFORMATION
  Report Type: 
  Country: None (occurrence: None)
  Receive Date: 20120128
  Receipt Date: 20110721
  Transmission Date: 20120608
  Serious: No
  Sender: FDA-Public Use
  Company Number: US-ABBOTT-11P-163-0841144-00

PATIENT
  Sex: Female

DRUGS (2)
  1. METHOTREXATE [Suspect]
     Indication: RHEUMATOID ARTHRITIS
     Dates: end: 20110601
  2. HUMIRA [Suspect]
     Indication: RHEUMATOID ARTHRITIS
     Route: 058
     Dates: start: 20110501

REACTIONS (6)
  - ERYTHEMA [None]
  - PRURITUS [None]
  - ABDOMINAL PAIN UPPER [None]
  - URINE ODOUR ABNORMAL [None]
  - FAECES DISCOLOURED [None]
  - SKIN ULCER [None]
